FAERS Safety Report 7081100-7 (Version None)
Quarter: 2010Q4

REPORT INFORMATION
  Report Type: 
  Country: None (occurrence: None)
  Receive Date: 20101103
  Receipt Date: 20101026
  Transmission Date: 20110411
  Serious: Yes (Death)
  Sender: FDA-Public Use
  Company Number: A0875029A

PATIENT
  Age: 64 Year
  Sex: Male
  Weight: 99.1 kg

DRUGS (1)
  1. VOTRIENT [Suspect]
     Indication: METASTATIC RENAL CELL CARCINOMA
     Route: 048

REACTIONS (10)
  - CONSTIPATION [None]
  - DECREASED APPETITE [None]
  - DISEASE PROGRESSION [None]
  - DYSPHAGIA [None]
  - DYSPHONIA [None]
  - DYSPNOEA EXERTIONAL [None]
  - PARALYSIS [None]
  - PLEURAL EFFUSION [None]
  - RENAL DISORDER [None]
  - RESPIRATORY DISORDER [None]
